FAERS Safety Report 7060488-7 (Version None)
Quarter: 2010Q4

REPORT INFORMATION
  Report Type: 
  Country: None (occurrence: None)
  Receive Date: 20101025
  Receipt Date: 20101013
  Transmission Date: 20110411
  Serious: Yes (Other)
  Sender: FDA-Public Use
  Company Number: GB-PFIZER INC-2010118457

PATIENT
  Age: 53 Year

DRUGS (2)
  1. CHAMPIX [Suspect]
     Indication: SMOKING CESSATION THERAPY
     Dosage: 1 MG, 1X/DAY
     Route: 048
     Dates: start: 20100718, end: 20100904
  2. DICLOFENAC [Concomitant]
     Indication: PAIN
     Dosage: UNK
     Route: 048

REACTIONS (4)
  - ANGER [None]
  - HEAD BANGING [None]
  - SELF-INJURIOUS IDEATION [None]
  - SLEEP DISORDER [None]
